FAERS Safety Report 5015234-5 (Version None)
Quarter: 2006Q2

REPORT INFORMATION
  Report Type: 
  Country: None (occurrence: None)
  Receive Date: 20060425
  Receipt Date: 20060105
  Transmission Date: 20061013
  Serious: No
  Sender: FDA-Public Use
  Company Number: 220834

PATIENT
  Age: 12 Year
  Sex: Male

DRUGS (4)
  1. XOLAIR [Suspect]
     Indication: ASTHMA
     Dosage: 300 MG, Q2W, SUBCUTANEOUS
     Route: 058
     Dates: start: 20051001
  2. ASMANEX TWISTHALER [Concomitant]
  3. ALBUTEROL (ALBUTEROL/ALBUTEROL SULFATE) [Concomitant]
  4. ALLEGRA [Concomitant]

REACTIONS (2)
  - INJECTION SITE HAEMORRHAGE [None]
  - INJECTION SITE PAIN [None]
